FAERS Safety Report 23711843 (Version 1)
Quarter: 2024Q2

REPORT INFORMATION
  Report Type: Spontaneous
  Country: US (occurrence: None)
  Receive Date: 20240404
  Receipt Date: 20240404
  Transmission Date: 20240716
  Serious: Yes (Death, Life-Threatening, Hospitalization)
  Sender: FDA-Public Use
  Company Number: None

PATIENT
  Age: 74 Year
  Sex: Female
  Weight: 113 kg

DRUGS (3)
  1. KETOROLAC [Suspect]
     Active Substance: KETOROLAC TROMETHAMINE
     Indication: Pain
     Dosage: OTHER FREQUENCY : ONCE;?
     Route: 040
     Dates: start: 20240324, end: 20240324
  2. HYDROCORTISONE [Concomitant]
     Active Substance: HYDROCORTISONE
  3. HEPARIN [Concomitant]
     Active Substance: HEPARIN SODIUM

REACTIONS (14)
  - Shock haemorrhagic [None]
  - Upper gastrointestinal haemorrhage [None]
  - Red blood cell transfusion [None]
  - Platelet transfusion [None]
  - Disseminated intravascular coagulation [None]
  - Mouth haemorrhage [None]
  - Wound haemorrhage [None]
  - Stress ulcer haemorrhage [None]
  - Rectal haemorrhage [None]
  - Haemorrhage [None]
  - Gastric haemorrhage [None]
  - Small intestinal haemorrhage [None]
  - Urosepsis [None]
  - Haematemesis [None]

NARRATIVE: CASE EVENT DATE: 20240324
